FAERS Safety Report 13288056 (Version 1)
Quarter: 2017Q1

REPORT INFORMATION
  Report Type: Spontaneous
  Country: US (occurrence: US)
  Receive Date: 20170302
  Receipt Date: 20170302
  Transmission Date: 20170428
  Serious: Yes (Hospitalization)
  Sender: FDA-Public Use
  Company Number: US-ACCORD-048642

PATIENT
  Age: 73 Year
  Sex: Female

DRUGS (2)
  1. LEVETIRACETAM. [Suspect]
     Active Substance: LEVETIRACETAM
     Indication: SEIZURE
     Dosage: 1500 MG TWICE A DAY;?24 H AFTER HOSPITAL DISCHARGE, HAVING BEEN ON APPROXIMATELY 5 DAYS
  2. VALPROIC ACID. [Suspect]
     Active Substance: VALPROIC ACID
     Indication: SEIZURE
     Dosage: 800 MG THREE TIMES A DAY;?24 H AFTER HOSPITAL DISCHARGE, HAVING BEEN ON APPROXIMATELY 5 DAYS

REACTIONS (1)
  - Acute generalised exanthematous pustulosis [Recovering/Resolving]
